FAERS Safety Report 9744002 (Version 3)
Quarter: 2014Q1

REPORT INFORMATION
  Report Type: Report from Study
  Country: BR (occurrence: BR)
  Receive Date: 20131210
  Receipt Date: 20140203
  Transmission Date: 20141002
  Serious: Yes (Hospitalization, Other)
  Sender: FDA-Public Use
  Company Number: PHHY2013BR144184

PATIENT
  Age: 88 Year
  Sex: Female
  Weight: 48 kg

DRUGS (6)
  1. ACLASTA [Suspect]
     Indication: OSTEOPOROSIS
     Dosage: 5 MG, YEARLY
     Route: 042
     Dates: start: 201301
  2. BENICAR [Concomitant]
     Indication: HYPERTENSION
     Dosage: 1 DF, DAILY
     Route: 048
     Dates: start: 2012
  3. RIVOTRIL [Concomitant]
     Indication: INSOMNIA
     Dosage: 10 DRP, DAILY
     Route: 048
     Dates: start: 2012
  4. NEBILET [Concomitant]
     Indication: HYPERTENSION
     Dosage: 1 DF, DAILY
     Route: 048
     Dates: start: 2012
  5. LEVAMLODIPINE BESILATE [Concomitant]
     Indication: HYPERTENSION
     Dosage: 1 DF, DAILY
     Route: 048
     Dates: start: 2012
  6. VALDOXAN [Concomitant]
     Indication: DEPRESSION
     Dosage: 1 DF, DAILY
     Route: 048
     Dates: start: 2012

REACTIONS (8)
  - Colitis [Recovering/Resolving]
  - Diarrhoea [Recovered/Resolved]
  - Oesophagitis [Unknown]
  - Vomiting [Recovered/Resolved]
  - Nausea [Recovering/Resolving]
  - Malaise [Unknown]
  - Tremor [Recovering/Resolving]
  - Muscular weakness [Unknown]
